FAERS Safety Report 8809538 (Version 1)
Quarter: 2012Q4

REPORT INFORMATION
  Report Type: 
  Country: DE (occurrence: DE)
  Receive Date: 20120926
  Receipt Date: 20120926
  Transmission Date: 20130627
  Serious: Yes (Death)
  Sender: FDA-Public Use
  Company Number: DE-PFIZER INC-2012235731

PATIENT
  Age: 20 Year
  Sex: Male
  Weight: 59.7 kg

DRUGS (1)
  1. ZITHROMAX [Suspect]
     Indication: RHINITIS
     Dosage: 250 mg, UNK
     Route: 048
     Dates: start: 20120316

REACTIONS (1)
  - Completed suicide [Fatal]
